FAERS Safety Report 16340509 (Version 1)
Quarter: 2019Q2

REPORT INFORMATION
  Report Type: Spontaneous
  Country: CA (occurrence: CA)
  Receive Date: 20190522
  Receipt Date: 20190522
  Transmission Date: 20190711
  Serious: Yes (Disabling, Other)
  Sender: FDA-Public Use
  Company Number: CA-AUROBINDO-AUR-APL-2019-028402

PATIENT

DRUGS (3)
  1. INSULIN [Concomitant]
     Active Substance: INSULIN NOS
     Indication: PRODUCT USED FOR UNKNOWN INDICATION
     Dosage: UNK
     Route: 065
  2. OXYCONTIN [Suspect]
     Active Substance: OXYCODONE HYDROCHLORIDE
     Indication: WOUND COMPLICATION
     Dosage: 1 DOSAGE FORM, 2 EVERY 1 DAY
     Route: 048
  3. GABAPENTIN. [Suspect]
     Active Substance: GABAPENTIN
     Indication: WOUND COMPLICATION
     Dosage: 1 DOSAGE FORM, 2 EVER 1 DAY
     Route: 048

REACTIONS (4)
  - Haemorrhage [Recovering/Resolving]
  - Product use in unapproved indication [Recovering/Resolving]
  - Head injury [Recovering/Resolving]
  - Loss of consciousness [Recovering/Resolving]
